FAERS Safety Report 10592978 (Version 1)
Quarter: 2014Q4

REPORT INFORMATION
  Report Type: Spontaneous
  Country: US (occurrence: None)
  Receive Date: 20141118
  Receipt Date: 20141118
  Transmission Date: 20150529
  Serious: Yes (Disabling)
  Sender: FDA-Public Use
  Company Number: None

PATIENT
  Age: 48 Year
  Sex: Female
  Weight: 81.65 kg

DRUGS (1)
  1. NEURONTIN [Suspect]
     Active Substance: GABAPENTIN
     Indication: ULNAR NERVE INJURY
     Route: 048
     Dates: start: 20141112, end: 20141117

REACTIONS (11)
  - Somnolence [None]
  - Dissociation [None]
  - Confusional state [None]
  - Dry mouth [None]
  - Clumsiness [None]
  - Impaired work ability [None]
  - Palpitations [None]
  - Crying [None]
  - Vision blurred [None]
  - Formication [None]
  - Thinking abnormal [None]

NARRATIVE: CASE EVENT DATE: 20141117
